FAERS Safety Report 5499554-6 (Version None)
Quarter: 2007Q4

REPORT INFORMATION
  Report Type: 
  Country: None (occurrence: None)
  Receive Date: 20071026
  Receipt Date: 20071015
  Transmission Date: 20080405
  Serious: Yes (Hospitalization)
  Sender: FDA-Public Use
  Company Number: US-SHR-US-2007-007134

PATIENT
  Age: 57 Year
  Sex: Female
  Weight: 65.76 kg

DRUGS (2)
  1. BETASERON [Suspect]
     Indication: RELAPSING-REMITTING MULTIPLE SCLEROSIS
     Dosage: 8 MIU, EVERY 2D
     Route: 058
     Dates: start: 19950520
  2. CORTICOSTEROIDS [Suspect]
     Dates: start: 20070311

REACTIONS (8)
  - AUTOIMMUNE DISORDER [None]
  - FEELING ABNORMAL [None]
  - LUNG DISORDER [None]
  - MULTIPLE SCLEROSIS [None]
  - NIGHT SWEATS [None]
  - PYREXIA [None]
  - VIRAL INFECTION [None]
  - WEIGHT INCREASED [None]
